FAERS Safety Report 8584040 (Version 4)
Quarter: 2014Q1

REPORT INFORMATION
  Report Type: Spontaneous
  Country: US (occurrence: US)
  Receive Date: 20120529
  Receipt Date: 20140313
  Transmission Date: 20141002
  Serious: No
  Sender: FDA-Public Use
  Company Number: US-PFIZER INC-2012124759

PATIENT
  Age: 50 Year
  Sex: Female

DRUGS (1)
  1. FLAGYL [Suspect]
     Dosage: UNK

REACTIONS (1)
  - No adverse event [Unknown]
